FAERS Safety Report 5206837-3 (Version None)
Quarter: 2006Q4

REPORT INFORMATION
  Report Type: 
  Country: None (occurrence: None)
  Receive Date: 20061026
  Receipt Date: 20060822
  Transmission Date: 20070319
  Serious: No
  Sender: FDA-Public Use
  Company Number: 2006102878

PATIENT
  Age: 13 Year
  Sex: Female

DRUGS (4)
  1. LYRICA [Suspect]
     Indication: ARTHRALGIA
     Dosage: 25 MG (1 IN 1 D)
     Dates: start: 20060601
  2. VIACTIV (CALCIUM) [Concomitant]
  3. CORTICOSTEROIDS [Concomitant]
  4. ADVIL [Concomitant]

REACTIONS (2)
  - MENORRHAGIA [None]
  - MENSTRUATION IRREGULAR [None]
